FAERS Safety Report 25861163 (Version 1)
Quarter: 2025Q3

REPORT INFORMATION
  Report Type: Spontaneous
  Country: US (occurrence: US)
  Receive Date: 20250929
  Receipt Date: 20250929
  Transmission Date: 20251021
  Serious: Yes (Hospitalization)
  Sender: JAZZ
  Company Number: US-JAZZ PHARMACEUTICALS-2025-US-022758

PATIENT
  Age: 59 Year
  Sex: Male

DRUGS (2)
  1. VYXEOS [Suspect]
     Active Substance: CYTARABINE\DAUNORUBICIN
     Indication: Product used for unknown indication
  2. CYTARABINE [Concomitant]
     Active Substance: CYTARABINE
     Indication: Product used for unknown indication

REACTIONS (8)
  - Anaemia [Unknown]
  - Coma [Unknown]
  - Device related infection [Unknown]
  - Pulse absent [Unknown]
  - Sepsis [Unknown]
  - Seizure [Unknown]
  - Thrombocytopenia [Unknown]
  - Neutropenia [Unknown]
